FAERS Safety Report 6871846-5 (Version None)
Quarter: 2010Q3

REPORT INFORMATION
  Report Type: 
  Country: None (occurrence: None)
  Receive Date: 20100723
  Receipt Date: 20100714
  Transmission Date: 20110219
  Serious: Yes (Hospitalization)
  Sender: FDA-Public Use
  Company Number: JP-JNJFOC-20100701376

PATIENT
  Age: 6 Decade
  Sex: Female

DRUGS (1)
  1. NEOPERIDOL [Suspect]
     Indication: NEUROSIS
     Route: 030

REACTIONS (8)
  - AGITATION [None]
  - ANXIETY [None]
  - DYSPNOEA [None]
  - GAIT DISTURBANCE [None]
  - PAIN [None]
  - PALPITATIONS [None]
  - RESTLESSNESS [None]
  - SUFFOCATION FEELING [None]
